FAERS Safety Report 19232564 (Version 1)
Quarter: 2021Q2

REPORT INFORMATION
  Report Type: Spontaneous
  Country: SI (occurrence: SI)
  Receive Date: 20210507
  Receipt Date: 20210507
  Transmission Date: 20210717
  Serious: Yes (Other)
  Sender: FDA-Public Use
  Company Number: NVSC2021SI098264

PATIENT
  Age: 42 Year
  Sex: Male

DRUGS (1)
  1. ACIPAN 40 MG GASTROREZISTENTNE TABLETE [Suspect]
     Active Substance: PANTOPRAZOLE SODIUM
     Indication: PRODUCT USED FOR UNKNOWN INDICATION
     Dosage: 40 MG, QD (1X1 FOR 6 WEEKS)
     Route: 065
     Dates: start: 202007

REACTIONS (7)
  - Haematochezia [Unknown]
  - Hepatic steatosis [Unknown]
  - Abdominal pain upper [Unknown]
  - Drug ineffective [Unknown]
  - Abdominal pain [Unknown]
  - Iron deficiency anaemia [Unknown]
  - Thrombocytosis [Unknown]

NARRATIVE: CASE EVENT DATE: 202011
